FAERS Safety Report 7054965-2 (Version None)
Quarter: 2010Q4

REPORT INFORMATION
  Report Type: 
  Country: None (occurrence: None)
  Receive Date: 20101021
  Receipt Date: 20101012
  Transmission Date: 20110411
  Serious: Yes (Death, Other)
  Sender: FDA-Public Use
  Company Number: DE-ELI_LILLY_AND_COMPANY-DE201010003338

PATIENT
  Age: 58 Year
  Sex: Female

DRUGS (2)
  1. GEMZAR [Suspect]
     Indication: NON-SMALL CELL LUNG CANCER
     Dosage: 4 X 625 MG/M2, UNKNOWN
     Route: 065
  2. CISPLATIN [Concomitant]
     Indication: NON-SMALL CELL LUNG CANCER
     Dosage: 3 X 20 MG/M2, UNKNOWN
     Route: 065

REACTIONS (4)
  - DYSPHAGIA [None]
  - LEUKOPENIA [None]
  - LUNG DISORDER [None]
  - RADIATION PNEUMONITIS [None]
